FAERS Safety Report 11847444 (Version 1)
Quarter: 2015Q4

REPORT INFORMATION
  Report Type: Spontaneous
  Country: US (occurrence: US)
  Receive Date: 20151217
  Receipt Date: 20151217
  Transmission Date: 20160305
  Serious: No
  Sender: FDA-Public Use
  Company Number: US-ASTRAZENECA-2015SF21056

PATIENT
  Age: 66 Year
  Sex: Female
  Weight: 74.8 kg

DRUGS (1)
  1. ZOMIG [Suspect]
     Active Substance: ZOLMITRIPTAN
     Indication: MIGRAINE
     Route: 045
     Dates: start: 20151001

REACTIONS (9)
  - Muscle tightness [Unknown]
  - Limb discomfort [Unknown]
  - Burning sensation [Unknown]
  - Dysphonia [Unknown]
  - Throat tightness [Unknown]
  - Throat irritation [Unknown]
  - Speech disorder [Unknown]
  - Headache [Unknown]
  - Off label use [Unknown]

NARRATIVE: CASE EVENT DATE: 201510
